FAERS Safety Report 18227553 (Version 1)
Quarter: 2020Q3

REPORT INFORMATION
  Report Type: Spontaneous
  Country: US (occurrence: US)
  Receive Date: 20200903
  Receipt Date: 20200903
  Transmission Date: 20201103
  Serious: No
  Sender: FDA-Public Use
  Company Number: None

PATIENT
  Age: 67 Year
  Sex: Female
  Weight: 86.18 kg

DRUGS (9)
  1. IBRANCE [Suspect]
     Active Substance: PALBOCICLIB
     Indication: BREAST CANCER
     Dosage: ?          OTHER FREQUENCY:21 DAYS;?
     Route: 048
     Dates: start: 20200716
  2. ANASTROZOLE. [Concomitant]
     Active Substance: ANASTROZOLE
  3. IBUPROFEN. [Concomitant]
     Active Substance: IBUPROFEN
  4. VITAMIN B12 [Concomitant]
     Active Substance: CYANOCOBALAMIN
  5. FAMOTIDINE. [Concomitant]
     Active Substance: FAMOTIDINE
  6. ACETAMINOPHEN. [Concomitant]
     Active Substance: ACETAMINOPHEN
  7. CALCIUM CARBONATE?VITAMIN D3 [Concomitant]
  8. ZOMETA [Concomitant]
     Active Substance: ZOLEDRONIC ACID
  9. KELP [Concomitant]
     Active Substance: KELP

REACTIONS (2)
  - Rash [None]
  - Alopecia [None]

NARRATIVE: CASE EVENT DATE: 20200903
